FAERS Safety Report 5011501-X (Version None)
Quarter: 2006Q2

REPORT INFORMATION
  Report Type: 
  Country: None (occurrence: None)
  Receive Date: 20060524
  Receipt Date: 20060516
  Transmission Date: 20061013
  Serious: Yes (Hospitalization)
  Sender: FDA-Public Use
  Company Number: 200612016GDS

PATIENT
  Age: 39 Year
  Sex: Male
  Weight: 68.5 kg

DRUGS (5)
  1. SORAFENIB [Suspect]
     Indication: HEPATIC NEOPLASM MALIGNANT
     Dosage: 400 MG, BID, ORAL
     Route: 048
     Dates: start: 20060301, end: 20060509
  2. HEPTODIN [Concomitant]
  3. METFORMIN [Concomitant]
  4. DIAMICRON [Concomitant]
  5. METHIONINE [Concomitant]

REACTIONS (1)
  - JAUNDICE CHOLESTATIC [None]
